FAERS Safety Report 9264154 (Version 1)
Quarter: 2013Q2

REPORT INFORMATION
  Report Type: Spontaneous
  Country: DE (occurrence: DE)
  Receive Date: 20130430
  Receipt Date: 20130430
  Transmission Date: 20140414
  Serious: Yes (Hospitalization, Other)
  Sender: FDA-Public Use
  Company Number: DE-ALEXION-A201300892

PATIENT
  Age: 1 Year
  Sex: Male
  Weight: 13.3 kg

DRUGS (15)
  1. SOLIRIS 300MG [Suspect]
     Indication: HAEMOLYTIC URAEMIC SYNDROME
     Dosage: UNK
     Route: 042
     Dates: start: 201111
  2. SOLIRIS 300MG [Suspect]
     Dosage: 600 MG, Q2W
     Route: 042
     Dates: start: 201202, end: 20130325
  3. SOLIRIS 300MG [Suspect]
     Dosage: 600 MG, QW
     Route: 042
     Dates: start: 20130325
  4. MEASLES, MUMPS AND RUBELLA VACCINE [Suspect]
     Dosage: UNK
     Dates: start: 201212
  5. INFLUENZA VACCINE [Suspect]
     Dosage: UNK
     Dates: start: 201301
  6. LEVETIRACETAM [Concomitant]
     Indication: CONVULSION
     Dosage: 250 MG, BID
  7. SODIUM BICARBONATE DALMAU [Concomitant]
     Dosage: 3 DF, 3 TIMES 4 ML
  8. DARBEPOETIN ALFA [Concomitant]
     Dosage: 30 MEQ, Q2W
  9. RAMIPRIL [Concomitant]
     Indication: HYPERTENSION
     Dosage: 1.25 MG, UNK
     Dates: end: 20130313
  10. RAMIPRIL [Concomitant]
     Dosage: 1.25 MG, UNK
     Dates: start: 20130325, end: 20130325
  11. RAMIPRIL [Concomitant]
     Dosage: 2.5 MG, UNK
     Dates: start: 20130325
  12. LOSARTAN [Concomitant]
     Dosage: 12.5 MG, UNK
     Dates: end: 20130313
  13. PIPERACILLIN W/TAZOBACTAM [Concomitant]
     Indication: PANCREATITIS
     Dosage: UNK
     Route: 042
     Dates: start: 20130325, end: 20130327
  14. METOPROLOL [Concomitant]
     Dosage: 23.75 MG, UNK
     Dates: start: 20130325
  15. AMLODIPINE [Concomitant]
     Dosage: 2.5 MG, UNK
     Dates: start: 20130325

REACTIONS (10)
  - Pancreatitis [Unknown]
  - Grand mal convulsion [Recovered/Resolved]
  - Hypertension [Unknown]
  - Thrombotic microangiopathy [Unknown]
  - Glomerular filtration rate decreased [Unknown]
  - Infection [Unknown]
  - Condition aggravated [Unknown]
  - Upper respiratory tract infection [Unknown]
  - Herpes zoster [None]
  - Cardio-respiratory arrest [None]
